FAERS Safety Report 4952335-1 (Version None)
Quarter: 2006Q1

REPORT INFORMATION
  Report Type: 
  Country: None (occurrence: None)
  Receive Date: 20060131
  Receipt Date: 20050916
  Transmission Date: 20060701
  Serious: Yes (Other)
  Sender: FDA-Public Use
  Company Number: WAES 0509USA02414

PATIENT
  Age: 19 Year
  Sex: Female

DRUGS (1)
  1. INVANZ [Suspect]
     Indication: ENDOMETRITIS
     Dosage: 1 GM/1X/IV
     Route: 042
     Dates: start: 20050910, end: 20050910

REACTIONS (1)
  - CONVULSION [None]
